FAERS Safety Report 15394270 (Version 1)
Quarter: 2018Q3

REPORT INFORMATION
  Report Type: Spontaneous
  Country: IN (occurrence: IN)
  Receive Date: 20180918
  Receipt Date: 20180918
  Transmission Date: 20181010
  Serious: Yes (Hospitalization, Disabling, Congenital Anomaly, Other)
  Sender: FDA-Public Use
  Company Number: IN-BION-007421

PATIENT
  Age: 2 Month
  Sex: Male
  Weight: 1.5 kg

DRUGS (1)
  1. VALPROIC ACID. [Suspect]
     Active Substance: VALPROIC ACID
     Indication: EPILEPSY
     Dosage: THROUGHOUT HER PREGNANCY
     Route: 064

REACTIONS (6)
  - Foetal anticonvulsant syndrome [Unknown]
  - Pulmonary hypertension [Unknown]
  - Heart disease congenital [Unknown]
  - Foetal distress syndrome [Unknown]
  - Respiratory distress [Unknown]
  - Foetal exposure during pregnancy [Unknown]
